FAERS Safety Report 5209015-7 (Version None)
Quarter: 2007Q1

REPORT INFORMATION
  Report Type: 
  Country: None (occurrence: None)
  Receive Date: 20070116
  Receipt Date: 20070109
  Transmission Date: 20070707
  Serious: Yes (Death, Hospitalization)
  Sender: FDA-Public Use
  Company Number: CM-MERCK-0612USA03494

PATIENT
  Age: 41 Year
  Sex: Male

DRUGS (1)
  1. MECTIZAN [Suspect]
     Route: 048
     Dates: start: 20061125, end: 20061125

REACTIONS (8)
  - COMA [None]
  - DEATH [None]
  - DECUBITUS ULCER [None]
  - HEADACHE [None]
  - OEDEMA [None]
  - PYREXIA [None]
  - TACHYCARDIA [None]
  - VERTIGO [None]
